FAERS Safety Report 16004260 (Version 1)
Quarter: 2019Q1

REPORT INFORMATION
  Report Type: Spontaneous
  Country: FR (occurrence: FR)
  Receive Date: 20190226
  Receipt Date: 20190226
  Transmission Date: 20190418
  Serious: Yes (Hospitalization, Other)
  Sender: FDA-Public Use
  Company Number: FR-ORION CORPORATION ORION PHARMA-19_00005578

PATIENT
  Age: 45 Year
  Sex: Female
  Weight: 54 kg

DRUGS (19)
  1. IZILOX [Concomitant]
     Active Substance: MOXIFLOXACIN HYDROCHLORIDE
     Route: 065
     Dates: start: 20141009, end: 20151024
  2. ENBREL [Suspect]
     Active Substance: ETANERCEPT
     Route: 058
     Dates: start: 20150507, end: 20150709
  3. DAIVOBET [Concomitant]
     Active Substance: BETAMETHASONE DIPROPIONATE\CALCIPOTRIENE
     Route: 065
     Dates: start: 20131202
  4. KETOPROFEN. [Concomitant]
     Active Substance: KETOPROFEN
     Indication: HEADACHE
     Dosage: 150 MG, AS NEEDED
     Route: 048
     Dates: start: 20140407
  5. AERIUS [Concomitant]
     Route: 065
     Dates: start: 20140407
  6. VENTOLINE [Concomitant]
     Active Substance: ALBUTEROL
     Route: 065
     Dates: start: 20140407
  7. DEXERYL [Concomitant]
     Route: 065
     Dates: start: 20131202
  8. SYMBICORT [Concomitant]
     Active Substance: BUDESONIDE\FORMOTEROL FUMARATE DIHYDRATE
     Route: 048
  9. DONORMYL [Concomitant]
     Route: 048
  10. METHOTREXATE (TRADE NAME UNKNOWN) [Suspect]
     Active Substance: METHOTREXATE
     Indication: PSORIASIS
     Route: 048
     Dates: start: 20111027, end: 20121215
  11. ENBREL [Suspect]
     Active Substance: ETANERCEPT
     Dosage: 50 MG, 2X/WEEK
     Route: 058
     Dates: start: 20131202, end: 20140306
  12. METHOTREXATE (TRADE NAME UNKNOWN) [Suspect]
     Active Substance: METHOTREXATE
     Route: 058
     Dates: start: 20170105
  13. METHOTREXATE (TRADE NAME UNKNOWN) [Suspect]
     Active Substance: METHOTREXATE
     Route: 058
     Dates: start: 20161013, end: 20170105
  14. ENBREL [Suspect]
     Active Substance: ETANERCEPT
     Indication: PSORIASIS
     Route: 058
     Dates: start: 20140307, end: 20141009
  15. FOLIC ACID. [Concomitant]
     Active Substance: FOLIC ACID
     Route: 048
     Dates: start: 20161013, end: 201706
  16. FOLIC ACID. [Concomitant]
     Active Substance: FOLIC ACID
     Dosage: 5 MG, 2X/WEEK
     Route: 048
     Dates: start: 201708
  17. NASONEX [Concomitant]
     Active Substance: MOMETASONE FUROATE
     Route: 065
     Dates: start: 20140407, end: 20140607
  18. XYZALL [Concomitant]
     Active Substance: LEVOCETIRIZINE DIHYDROCHLORIDE
     Route: 048
  19. ENBREL [Suspect]
     Active Substance: ETANERCEPT
     Route: 058
     Dates: start: 20141109, end: 201504

REACTIONS (3)
  - Psoriasis [Unknown]
  - Intraductal proliferative breast lesion [Not Recovered/Not Resolved]
  - Breast neoplasm [Recovered/Resolved with Sequelae]

NARRATIVE: CASE EVENT DATE: 20150709
